FAERS Safety Report 8477449-3 (Version None)
Quarter: 2012Q2

REPORT INFORMATION
  Report Type: 
  Country: None (occurrence: None)
  Receive Date: 20120629
  Receipt Date: 20120627
  Transmission Date: 20120825
  Serious: Yes (Other)
  Sender: FDA-Public Use
  Company Number: PHHY2012BR046743

PATIENT
  Sex: Male

DRUGS (3)
  1. CLONAZEPAM [Concomitant]
     Indication: SLEEP DISORDER
     Dosage: 2 MG, UNK
  2. MULTI-VITAMINS [Concomitant]
     Dosage: UNK UKN, UNK
  3. DIOVAN HCT [Suspect]
     Indication: HYPERTENSION
     Dosage: 1 DF (160/12.5 MG) DAILY

REACTIONS (6)
  - MUSCULAR WEAKNESS [None]
  - BLOOD PRESSURE INCREASED [None]
  - DYSPNOEA [None]
  - DIABETES MELLITUS [None]
  - BLOOD CHOLESTEROL ABNORMAL [None]
  - CEREBROVASCULAR ACCIDENT [None]
